FAERS Safety Report 8828367 (Version 1)
Quarter: 2012Q4

REPORT INFORMATION
  Report Type: 
  Country: DE (occurrence: DE)
  Receive Date: 20121005
  Receipt Date: 20121005
  Transmission Date: 20130627
  Serious: Yes (Other)
  Sender: FDA-Public Use
  Company Number: DE-TEVA-358616GER

PATIENT
  Age: 17 Year
  Sex: Female
  Weight: 58 kg

DRUGS (3)
  1. RAMIPRIL [Suspect]
     Indication: HYPERTENSION
     Dosage: 2.5 Milligram Daily;
     Route: 048
     Dates: start: 201202, end: 201203
  2. NOVORAPID [Concomitant]
     Indication: TYPE 1 DIABETES MELLITUS
     Dosage: 1-2 E/BE
     Dates: start: 200607
  3. CARBAMAZEPIN [Concomitant]
     Indication: EPILEPSY
     Dosage: 2000 Milligram Daily;
     Route: 048
     Dates: start: 1996

REACTIONS (3)
  - Aphthous stomatitis [Not Recovered/Not Resolved]
  - Dysphagia [Not Recovered/Not Resolved]
  - Lip swelling [Not Recovered/Not Resolved]
